FAERS Safety Report 14347431 (Version 1)
Quarter: 2017Q4

REPORT INFORMATION
  Report Type: Spontaneous
  Country: US (occurrence: US)
  Receive Date: 20171230
  Receipt Date: 20171230
  Transmission Date: 20180321
  Serious: No
  Sender: FDA-Public Use
  Company Number: None

PATIENT
  Age: 33 Year
  Sex: Male
  Weight: 80.74 kg

DRUGS (2)
  1. BUPROPION HYDROCHLORIDE XL [Suspect]
     Active Substance: BUPROPION HYDROCHLORIDE
     Indication: DEPRESSION
     Route: 048
     Dates: start: 20161128, end: 20161218
  2. BUPROPION HCL XL 150MG TABLET [Suspect]
     Active Substance: BUPROPION HYDROCHLORIDE
     Route: 048

REACTIONS (5)
  - Insomnia [None]
  - Flushing [None]
  - Mood altered [None]
  - Anxiety [None]
  - Swelling face [None]

NARRATIVE: CASE EVENT DATE: 20161212
